FAERS Safety Report 4459973-3 (Version None)
Quarter: 2004Q3

REPORT INFORMATION
  Report Type: 
  Country: None (occurrence: None)
  Receive Date: 20040928
  Receipt Date: 20030917
  Transmission Date: 20050211
  Serious: No
  Sender: FDA-Public Use
  Company Number: US-GLAXOSMITHKLINE-A0426337A

PATIENT
  Age: 77 Year
  Sex: Male
  Weight: 117.3 kg

DRUGS (1)
  1. SEREVENT [Suspect]
     Indication: ASTHMA
     Route: 055
     Dates: start: 20030813, end: 20030901

REACTIONS (1)
  - HYPERSENSITIVITY [None]
